FAERS Safety Report 18506370 (Version 44)
Quarter: 2025Q4

REPORT INFORMATION
  Report Type: Report from Study
  Country: US (occurrence: US)
  Receive Date: 20201116
  Receipt Date: 20251218
  Transmission Date: 20260118
  Serious: Yes (Hospitalization, Other)
  Sender: TAKEDA
  Company Number: US-SHIRE-US202015628

PATIENT
  Age: 70 Year
  Sex: Female
  Weight: 63 kg

DRUGS (6)
  1. HUMAN IMMUNOGLOBULIN G [Suspect]
     Active Substance: HUMAN IMMUNOGLOBULIN G
     Indication: Primary immunodeficiency syndrome
     Dosage: 16 GRAM, Q2WEEKS
  2. HUMAN IMMUNOGLOBULIN G [Suspect]
     Active Substance: HUMAN IMMUNOGLOBULIN G
     Indication: Immunodeficiency common variable
     Dosage: UNK
  3. DEXAMETHASONE [Suspect]
     Active Substance: DEXAMETHASONE
     Indication: Product used for unknown indication
     Dosage: UNK
  4. COVID-19 VACCINE NOS [Suspect]
     Active Substance: COVID-19 VACCINE
     Indication: COVID-19 immunisation
     Dosage: UNK
  5. TAMOXIFEN [Suspect]
     Active Substance: TAMOXIFEN
     Indication: Product used for unknown indication
     Dosage: UNK
  6. METAMUCIL [Suspect]
     Active Substance: PLANTAGO SEED
     Indication: Product used for unknown indication
     Dosage: UNK

REACTIONS (104)
  - Cognitive disorder [Unknown]
  - Sinus congestion [Unknown]
  - Squamous cell carcinoma [Unknown]
  - Choroid neoplasm [Unknown]
  - Corneal dystrophy [Unknown]
  - Diabetes mellitus [Unknown]
  - Cataract [Unknown]
  - Oesophageal stenosis [Unknown]
  - Meningococcal sepsis [Unknown]
  - Gastric ulcer [Unknown]
  - Polychondritis [Not Recovered/Not Resolved]
  - Malignant melanoma [Unknown]
  - Cellulitis [Unknown]
  - Diverticulitis [Unknown]
  - Sinus disorder [Unknown]
  - Weight decreased [Not Recovered/Not Resolved]
  - Ear pain [Unknown]
  - Post-traumatic stress disorder [Unknown]
  - Tendonitis [Recovering/Resolving]
  - Plantar fasciitis [Recovering/Resolving]
  - Blood glucose decreased [Recovered/Resolved]
  - Fasting [Recovered/Resolved]
  - Weight increased [Unknown]
  - COVID-19 [Unknown]
  - Depressed mood [Unknown]
  - Synovial cyst [Unknown]
  - Hiatus hernia [Unknown]
  - Joint effusion [Recovering/Resolving]
  - Flank pain [Unknown]
  - Spinal stenosis [Unknown]
  - Otitis externa [Unknown]
  - Dysphonia [Unknown]
  - Eye infection [Recovering/Resolving]
  - Dry mouth [Unknown]
  - Inflammation [Unknown]
  - Executive dysfunction [Unknown]
  - Skin mass [Unknown]
  - Learning disability [Unknown]
  - Seasonal allergy [Unknown]
  - Speech disorder [Unknown]
  - Rubber sensitivity [Unknown]
  - Blood glucose abnormal [Unknown]
  - Oral discomfort [Unknown]
  - Muscle strain [Unknown]
  - Product dose omission issue [Unknown]
  - Allergic reaction to excipient [Unknown]
  - Brain fog [Not Recovered/Not Resolved]
  - Oesophagitis [Unknown]
  - Blood cholesterol increased [Unknown]
  - Vision blurred [Unknown]
  - Conjunctivitis [Unknown]
  - Dermatitis [Unknown]
  - Hypersensitivity [Unknown]
  - Chest pain [Unknown]
  - Oropharyngeal pain [Unknown]
  - Anxiety [Unknown]
  - Muscle spasms [Not Recovered/Not Resolved]
  - Malaise [Unknown]
  - Chest discomfort [Unknown]
  - Dyspnoea [Unknown]
  - Dizziness [Unknown]
  - Migraine [Unknown]
  - Abdominal pain [Unknown]
  - Diarrhoea [Unknown]
  - Cyst [Unknown]
  - Intervertebral disc degeneration [Unknown]
  - Tendon rupture [Unknown]
  - Retching [Unknown]
  - Arthritis [Unknown]
  - Blood magnesium decreased [Unknown]
  - Anaesthetic complication [Unknown]
  - Oral herpes [Unknown]
  - Poor quality sleep [Unknown]
  - Skin disorder [Unknown]
  - Procedural pain [Unknown]
  - Platelet count abnormal [Unknown]
  - Haemoglobin abnormal [Unknown]
  - Food poisoning [Unknown]
  - Laryngitis [Unknown]
  - Overweight [Recovering/Resolving]
  - Skin laceration [Unknown]
  - Post procedural infection [Unknown]
  - Limb injury [Unknown]
  - Psychiatric symptom [Unknown]
  - Mental disorder [Unknown]
  - Dysphagia [Unknown]
  - Bacterial test positive [Unknown]
  - Ligament sprain [Unknown]
  - Hypoacusis [Unknown]
  - Hearing aid user [Unknown]
  - Hypoaesthesia [Not Recovered/Not Resolved]
  - Sinusitis [Recovered/Resolved]
  - Insomnia [Unknown]
  - Anaemia [Recovering/Resolving]
  - Pain in extremity [Unknown]
  - Pyrexia [Unknown]
  - Vomiting [Unknown]
  - Back pain [Unknown]
  - Arthralgia [Unknown]
  - Paraesthesia [Unknown]
  - Pain [Unknown]
  - Fatigue [Unknown]
  - Upper limb fracture [Unknown]
  - Asthenia [Unknown]

NARRATIVE: CASE EVENT DATE: 20200101
